FAERS Safety Report 25217928 (Version 3)
Quarter: 2025Q2

REPORT INFORMATION
  Report Type: Spontaneous
  Country: JP (occurrence: JP)
  Receive Date: 20250421
  Receipt Date: 20250609
  Transmission Date: 20250716
  Serious: Yes (Other)
  Sender: GENMAB
  Company Number: JP-GENMAB-2025-01044

PATIENT
  Age: 81 Year
  Sex: Male

DRUGS (2)
  1. EPKINLY [Suspect]
     Active Substance: EPCORITAMAB-BYSP
     Indication: Diffuse large B-cell lymphoma
     Route: 058
  2. EPKINLY [Suspect]
     Active Substance: EPCORITAMAB-BYSP
     Route: 058

REACTIONS (2)
  - Diffuse large B-cell lymphoma [Unknown]
  - Tumour pseudoprogression [Unknown]
